FAERS Safety Report 11929566 (Version 2)
Quarter: 2020Q1

REPORT INFORMATION
  Report Type: Spontaneous
  Country: US (occurrence: US)
  Receive Date: 20160120
  Receipt Date: 20200331
  Transmission Date: 20200409
  Serious: Yes (Death)
  Sender: FDA-Public Use
  Company Number: US-ASTRAZENECA-2016SE03394

PATIENT
  Age: 21577 Day
  Sex: Male
  Weight: 98.4 kg

DRUGS (40)
  1. JANUMET [Suspect]
     Active Substance: METFORMIN HYDROCHLORIDE\SITAGLIPTIN PHOSPHATE
     Route: 065
     Dates: start: 20110321, end: 201104
  2. ALBUTEROL. [Concomitant]
     Active Substance: ALBUTEROL
     Dates: start: 20130128
  3. MICARDIS HCT [Concomitant]
     Active Substance: HYDROCHLOROTHIAZIDE\TELMISARTAN
  4. BENICAR [Concomitant]
     Active Substance: OLMESARTAN MEDOXOMIL
  5. SINGULAIR [Concomitant]
     Active Substance: MONTELUKAST SODIUM
  6. SULFACET SODIUM [Concomitant]
  7. CEPHALEXIN. [Concomitant]
     Active Substance: CEPHALEXIN
  8. NYSTATIN. [Concomitant]
     Active Substance: NYSTATIN
  9. VICTOZA [Suspect]
     Active Substance: LIRAGLUTIDE
     Route: 065
     Dates: start: 20111210, end: 201301
  10. LIPITOR [Concomitant]
     Active Substance: ATORVASTATIN CALCIUM
     Dates: start: 20130128
  11. RHINOCORT [Concomitant]
     Active Substance: BUDESONIDE
  12. DULERA [Concomitant]
     Active Substance: FORMOTEROL FUMARATE DIHYDRATE\MOMETASONE FUROATE
     Dates: start: 20130128
  13. FLONASE [Concomitant]
     Active Substance: FLUTICASONE PROPIONATE
     Dates: start: 20130128
  14. BENICAR HCT [Concomitant]
     Active Substance: HYDROCHLOROTHIAZIDE\OLMESARTAN MEDOXOMIL
  15. ZYRTEC [Concomitant]
     Active Substance: CETIRIZINE HYDROCHLORIDE
  16. FLUTICASONE PROPIONATE. [Concomitant]
     Active Substance: FLUTICASONE PROPIONATE
  17. AZITHROMYCIN ANHYDROUS. [Concomitant]
     Active Substance: AZITHROMYCIN ANHYDROUS
  18. ACCOLATE [Concomitant]
     Active Substance: ZAFIRLUKAST
  19. GLUMETZA [Concomitant]
     Active Substance: METFORMIN HYDROCHLORIDE
     Dates: start: 20130128
  20. PIOGLITAZONE HCI [Concomitant]
  21. VENTOLIN [Concomitant]
     Active Substance: ALBUTEROL SULFATE
  22. FEXOFENADINE [Concomitant]
     Active Substance: FEXOFENADINE HYDROCHLORIDE
  23. PREDNISONE. [Concomitant]
     Active Substance: PREDNISONE
  24. ONGLYZA [Concomitant]
     Active Substance: SAXAGLIPTIN HYDROCHLORIDE
  25. MICARDIS [Concomitant]
     Active Substance: TELMISARTAN
     Dates: start: 20130128
  26. NIACIN. [Concomitant]
     Active Substance: NIACIN
     Dates: start: 20130128
  27. VERAPAMIL HCI [Concomitant]
  28. NICOTINIC ACID [Concomitant]
     Active Substance: NIACIN
  29. VERAPAMIL [Concomitant]
     Active Substance: VERAPAMIL HYDROCHLORIDE
  30. ADVAIR DISKUS [Concomitant]
     Active Substance: FLUTICASONE PROPIONATE\SALMETEROL XINAFOATE
  31. FAMOTIDINE. [Concomitant]
     Active Substance: FAMOTIDINE
  32. PROAIR HFA [Concomitant]
     Active Substance: ALBUTEROL SULFATE
  33. DIOVAN [Concomitant]
     Active Substance: VALSARTAN
  34. BYETTA [Suspect]
     Active Substance: EXENATIDE
     Route: 065
     Dates: start: 20111212, end: 201207
  35. JANUVIA [Suspect]
     Active Substance: SITAGLIPTIN PHOSPHATE
     Route: 065
     Dates: start: 20070820, end: 200712
  36. VERAPAMIL [Concomitant]
     Active Substance: VERAPAMIL HYDROCHLORIDE
     Dates: start: 20130128
  37. ASPIRIN. [Concomitant]
     Active Substance: ASPIRIN
     Dates: start: 20130128
  38. PRILOSEC [Concomitant]
     Active Substance: OMEPRAZOLE MAGNESIUM
  39. FLUTICASONE. [Concomitant]
     Active Substance: FLUTICASONE
  40. BUDESONIDE. [Concomitant]
     Active Substance: BUDESONIDE

REACTIONS (3)
  - Pancreatic carcinoma [Fatal]
  - Adenocarcinoma pancreas [Fatal]
  - Hepatic cancer metastatic [Fatal]

NARRATIVE: CASE EVENT DATE: 20130805
